FAERS Safety Report 7928038-8 (Version None)
Quarter: 2011Q4

REPORT INFORMATION
  Report Type: 
  Country: None (occurrence: None)
  Receive Date: 20111118
  Receipt Date: 20111109
  Transmission Date: 20120403
  Serious: Yes (Hospitalization)
  Sender: FDA-Public Use
  Company Number: US-BAYER-2011-036334

PATIENT
  Age: 21 Year
  Sex: Female
  Weight: 74.6 kg

DRUGS (4)
  1. PEPCID [Concomitant]
     Dosage: 40 MG, QD
     Route: 048
  2. YAZ [Suspect]
     Indication: ACNE
     Dosage: UNK
     Dates: start: 20090101
  3. MAGNESIUM HYDROXIDE TAB [Concomitant]
     Route: 048
  4. YAZ [Suspect]
     Indication: PREMENSTRUAL SYNDROME

REACTIONS (6)
  - PANCREATITIS [None]
  - PAIN [None]
  - GALLBLADDER DISORDER [None]
  - DEPRESSION [None]
  - ANXIETY [None]
  - CHOLECYSTITIS CHRONIC [None]
